FAERS Safety Report 7388715-7 (Version None)
Quarter: 2011Q2

REPORT INFORMATION
  Report Type: 
  Country: None (occurrence: None)
  Receive Date: 20110401
  Receipt Date: 20110325
  Transmission Date: 20111010
  Serious: Yes (Other)
  Sender: FDA-Public Use
  Company Number: CA-BRISTOL-MYERS SQUIBB COMPANY-15638828

PATIENT
  Age: 50 Year
  Sex: Female

DRUGS (2)
  1. AVASTIN [Suspect]
     Indication: MALIGNANT GLIOMA
     Route: 042
     Dates: start: 20100825
  2. ETOPOSIDE [Suspect]
     Dosage: TREATED 3 WEEKS WITH 1 WEEK REST
     Dates: start: 20100814

REACTIONS (3)
  - HEMIPARESIS [None]
  - FALL [None]
  - FATIGUE [None]
